FAERS Safety Report 25362202 (Version 1)
Quarter: 2025Q2

REPORT INFORMATION
  Report Type: Spontaneous
  Country: US (occurrence: US)
  Receive Date: 20250527
  Receipt Date: 20250527
  Transmission Date: 20250717
  Serious: Yes (Death, Other)
  Sender: DAIICHI
  Company Number: US-DSJP-DS-2025-142660-US

PATIENT
  Age: 52 Year
  Sex: Female

DRUGS (3)
  1. ENHERTU [Suspect]
     Active Substance: FAM-TRASTUZUMAB DERUXTECAN-NXKI
     Indication: Breast cancer stage IV
     Route: 065
     Dates: start: 202409
  2. ENHERTU [Suspect]
     Active Substance: FAM-TRASTUZUMAB DERUXTECAN-NXKI
     Indication: Hormone receptor positive HER2 negative breast cancer
     Route: 042
  3. ENHERTU [Suspect]
     Active Substance: FAM-TRASTUZUMAB DERUXTECAN-NXKI
     Route: 042
     Dates: start: 20250418

REACTIONS (4)
  - Death [Fatal]
  - Myelodysplastic syndrome [Unknown]
  - Cytopenia [Unknown]
  - Therapy change [Unknown]

NARRATIVE: CASE EVENT DATE: 20250301
